FAERS Safety Report 17558247 (Version 9)
Quarter: 2020Q3

REPORT INFORMATION
  Report Type: Spontaneous
  Country: CA (occurrence: CA)
  Receive Date: 20200318
  Receipt Date: 20200925
  Transmission Date: 20201102
  Serious: Yes (Other)
  Sender: FDA-Public Use
  Company Number: CA-JNJFOC-20200316516

PATIENT
  Age: 60 Year
  Sex: Female

DRUGS (26)
  1. PLAQUENIL                          /00072602/ [Suspect]
     Active Substance: HYDROXYCHLOROQUINE DIPHOSPHATE
     Indication: PRODUCT USED FOR UNKNOWN INDICATION
     Route: 048
  2. SULFASALAZINE. [Suspect]
     Active Substance: SULFASALAZINE
     Indication: RHEUMATOID ARTHRITIS
     Route: 048
  3. INFLIXIMAB [Suspect]
     Active Substance: INFLIXIMAB
     Indication: PRODUCT USED FOR UNKNOWN INDICATION
     Route: 042
  4. METHOTREXATE. [Concomitant]
     Active Substance: METHOTREXATE
     Route: 048
  5. REMICADE [Suspect]
     Active Substance: INFLIXIMAB
     Route: 042
  6. ANAKINRA [Suspect]
     Active Substance: ANAKINRA
     Indication: PRODUCT USED FOR UNKNOWN INDICATION
     Route: 058
  7. ORENCIA [Suspect]
     Active Substance: ABATACEPT
     Indication: PRODUCT USED FOR UNKNOWN INDICATION
     Route: 065
  8. TOCILIZUMAB. [Suspect]
     Active Substance: TOCILIZUMAB
     Indication: PRODUCT USED FOR UNKNOWN INDICATION
     Route: 065
  9. HYDROXYCHLOROQUINE SULFATE. [Suspect]
     Active Substance: HYDROXYCHLOROQUINE SULFATE
     Indication: PRODUCT USED FOR UNKNOWN INDICATION
     Route: 048
  10. HYDROXYCHLOROQUINE [Suspect]
     Active Substance: HYDROXYCHLOROQUINE
     Indication: PRODUCT USED FOR UNKNOWN INDICATION
     Route: 065
  11. CELEBREX [Suspect]
     Active Substance: CELECOXIB
     Indication: PRODUCT USED FOR UNKNOWN INDICATION
     Route: 065
  12. NAPROXEN. [Suspect]
     Active Substance: NAPROXEN
     Indication: PRODUCT USED FOR UNKNOWN INDICATION
     Route: 065
  13. METHOTREXATE SODIUM. [Suspect]
     Active Substance: METHOTREXATE SODIUM
     Indication: RHEUMATOID ARTHRITIS
     Route: 048
  14. DESOXIMETASONE. [Concomitant]
     Active Substance: DESOXIMETASONE
     Indication: PRODUCT USED FOR UNKNOWN INDICATION
     Route: 065
  15. PREDNISONE. [Concomitant]
     Active Substance: PREDNISONE
  16. ARAVA [Suspect]
     Active Substance: LEFLUNOMIDE
     Indication: PRODUCT USED FOR UNKNOWN INDICATION
     Route: 048
  17. PREDNISONE. [Concomitant]
     Active Substance: PREDNISONE
     Indication: PRODUCT USED FOR UNKNOWN INDICATION
     Route: 065
  18. SIMPONI [Suspect]
     Active Substance: GOLIMUMAB
     Indication: RHEUMATOID ARTHRITIS
     Route: 058
  19. VIOXX [Suspect]
     Active Substance: ROFECOXIB
     Indication: PRODUCT USED FOR UNKNOWN INDICATION
     Route: 065
  20. REMICADE [Suspect]
     Active Substance: INFLIXIMAB
     Indication: PRODUCT USED FOR UNKNOWN INDICATION
     Route: 042
  21. ACTEMRA [Suspect]
     Active Substance: TOCILIZUMAB
     Indication: PRODUCT USED FOR UNKNOWN INDICATION
     Route: 065
  22. ANAKINRA [Suspect]
     Active Substance: ANAKINRA
     Route: 065
  23. ENBREL [Suspect]
     Active Substance: ETANERCEPT
     Indication: RHEUMATOID ARTHRITIS
     Route: 058
  24. HUMIRA [Suspect]
     Active Substance: ADALIMUMAB
     Indication: RHEUMATOID ARTHRITIS
     Route: 058
  25. ERELZI [Suspect]
     Active Substance: ETANERCEPT-SZZS
     Indication: RHEUMATOID ARTHRITIS
     Route: 058
  26. METHOTREXATE. [Concomitant]
     Active Substance: METHOTREXATE
     Route: 048

REACTIONS (13)
  - Arthrodesis [Unknown]
  - Arthralgia [Unknown]
  - Drug ineffective [Unknown]
  - Arthropathy [Unknown]
  - Treatment failure [Unknown]
  - Knee arthroplasty [Unknown]
  - Pain [Unknown]
  - Contraindicated product administered [Unknown]
  - Off label use [Unknown]
  - Shoulder arthroplasty [Unknown]
  - Red blood cell sedimentation rate abnormal [Unknown]
  - Joint swelling [Unknown]
  - Drug hypersensitivity [Unknown]
